FAERS Safety Report 23825227 (Version 3)
Quarter: 2024Q3

REPORT INFORMATION
  Report Type: Spontaneous
  Country: BE (occurrence: BE)
  Receive Date: 20240507
  Receipt Date: 20240717
  Transmission Date: 20241016
  Serious: Yes (Hospitalization)
  Sender: ROCHE
  Company Number: BE-ROCHE-3549940

PATIENT
  Age: 62 Year
  Sex: Female

DRUGS (4)
  1. VABYSMO [Suspect]
     Active Substance: FARICIMAB\FARICIMAB-SVOA
     Indication: Product used for unknown indication
     Route: 065
     Dates: start: 20240312
  2. VANCOMYCIN [Concomitant]
     Active Substance: VANCOMYCIN
     Route: 050
  3. CEFTAZIDIME [Concomitant]
     Active Substance: CEFTAZIDIME
  4. LEVOTHYROXINE SODIUM [Concomitant]
     Active Substance: LEVOTHYROXINE SODIUM
     Dosage: 125 -100 MG

REACTIONS (6)
  - Iridocyclitis [Recovering/Resolving]
  - Vitritis [Recovering/Resolving]
  - Chorioretinitis [Recovering/Resolving]
  - Uveitis [Recovering/Resolving]
  - Cataract [Recovering/Resolving]
  - Pain [Recovering/Resolving]
